FAERS Safety Report 5234235-5 (Version None)
Quarter: 2007Q1

REPORT INFORMATION
  Report Type: 
  Country: None (occurrence: None)
  Receive Date: 20070207
  Receipt Date: 20070131
  Transmission Date: 20070707
  Serious: Yes (Hospitalization)
  Sender: FDA-Public Use
  Company Number: 233169

PATIENT
  Age: 67 Year
  Sex: Female
  Weight: 87.1 kg

DRUGS (2)
  1. XOLAIR [Suspect]
     Indication: DRUG USE FOR UNKNOWN INDICATION
     Dosage: 300 MG, SUBCUTANEOUS
     Route: 058
     Dates: start: 20061108
  2. AVELOX [Concomitant]

REACTIONS (21)
  - ALANINE AMINOTRANSFERASE INCREASED [None]
  - ASPARTATE AMINOTRANSFERASE INCREASED [None]
  - ATELECTASIS [None]
  - BACK PAIN [None]
  - CHILLS [None]
  - DYSPNOEA EXERTIONAL [None]
  - GRANULOMA [None]
  - HEPATIC ENZYME INCREASED [None]
  - HILAR LYMPHADENOPATHY [None]
  - HYPERHIDROSIS [None]
  - MALAISE [None]
  - PAIN [None]
  - PLEURISY [None]
  - PLEURITIC PAIN [None]
  - PNEUMONIA [None]
  - RED BLOOD CELL SEDIMENTATION RATE INCREASED [None]
  - RHINORRHOEA [None]
  - SCAR [None]
  - SINUSITIS [None]
  - VIRAL INFECTION [None]
  - WHITE BLOOD CELL COUNT INCREASED [None]
